FAERS Safety Report 8564222-0 (Version None)
Quarter: 2012Q3

REPORT INFORMATION
  Report Type: 
  Country: None (occurrence: None)
  Receive Date: 20120803
  Receipt Date: 20120724
  Transmission Date: 20120928
  Serious: Yes (Hospitalization, Other)
  Sender: FDA-Public Use
  Company Number: AT-JNJFOC-20120713097

PATIENT
  Age: 19 Year
  Sex: Female

DRUGS (3)
  1. ANAEROBEX [Concomitant]
     Indication: GASTROINTESTINAL INFECTION
     Route: 065
     Dates: start: 20120719
  2. CIPROFLOXACIN [Concomitant]
     Indication: GASTROINTESTINAL INFECTION
     Route: 065
     Dates: start: 20120719
  3. SIMPONI [Suspect]
     Indication: CROHN'S DISEASE
     Route: 058
     Dates: start: 20120401

REACTIONS (4)
  - DIARRHOEA INFECTIOUS [None]
  - INAPPROPRIATE SCHEDULE OF DRUG ADMINISTRATION [None]
  - WEIGHT DECREASED [None]
  - OFF LABEL USE [None]
